FAERS Safety Report 15362432 (Version 1)
Quarter: 2018Q3

REPORT INFORMATION
  Report Type: Report from Study
  Country: US (occurrence: US)
  Receive Date: 20180907
  Receipt Date: 20180907
  Transmission Date: 20181010
  Serious: Yes (Other)
  Sender: FDA-Public Use
  Company Number: US-MALLINCKRODT-T201802922

PATIENT
  Sex: Female

DRUGS (4)
  1. REPOSITORY CORTICOTROPIN INJECTION [Suspect]
     Active Substance: CORTICOTROPIN
     Dosage: 80 UNITS/1 ML, 2 TIMES PER WEEK SUNDAY/WEDNESDAY
     Route: 030
     Dates: start: 20180704, end: 2018
  2. REPOSITORY CORTICOTROPIN INJECTION [Suspect]
     Active Substance: CORTICOTROPIN
     Dosage: 80 UNITS/1 ML, TWICE WEEKLY WED/SUN
     Route: 030
     Dates: start: 2018, end: 20180826
  3. REPOSITORY CORTICOTROPIN INJECTION [Suspect]
     Active Substance: CORTICOTROPIN
     Indication: RHEUMATOID ARTHRITIS
     Dosage: 80 UNITS/ML, TWICE A WEEK FOR 12 WEEKS
     Route: 058
     Dates: start: 201806, end: 2018
  4. REPOSITORY CORTICOTROPIN INJECTION [Suspect]
     Active Substance: CORTICOTROPIN
     Dosage: 80 UNITS/1 ML, 3 TIMES A WEEK MONDAY/ WEDNESDAY/FRIDAY
     Route: 030
     Dates: start: 20180714, end: 2018

REACTIONS (15)
  - Myalgia [Recovering/Resolving]
  - Wrong technique in product usage process [Not Recovered/Not Resolved]
  - Neuralgia [Unknown]
  - Pain in extremity [Not Recovered/Not Resolved]
  - Contusion [Recovering/Resolving]
  - Memory impairment [Recovering/Resolving]
  - Confusional state [Recovering/Resolving]
  - Rheumatoid arthritis [Not Recovered/Not Resolved]
  - Blood glucose decreased [Recovering/Resolving]
  - Diplopia [Recovering/Resolving]
  - Fall [Recovering/Resolving]
  - Tooth infection [Not Recovered/Not Resolved]
  - Diabetes mellitus [Not Recovered/Not Resolved]
  - Peripheral swelling [Not Recovered/Not Resolved]
  - Weight increased [Not Recovered/Not Resolved]

NARRATIVE: CASE EVENT DATE: 2018
